FAERS Safety Report 24574087 (Version 1)
Quarter: 2024Q4

REPORT INFORMATION
  Report Type: Spontaneous
  Country: US (occurrence: US)
  Receive Date: 20241104
  Receipt Date: 20241104
  Transmission Date: 20250115
  Serious: No
  Sender: ELI LILLY AND COMPANY
  Company Number: US-ELI_LILLY_AND_COMPANY-US202411000281

PATIENT
  Age: 66 Year
  Sex: Male

DRUGS (1)
  1. OLUMIANT [Suspect]
     Active Substance: BARICITINIB
     Indication: Psoriatic arthropathy
     Dosage: 2 MG, DAILY
     Route: 048

REACTIONS (2)
  - Skin ulcer [Unknown]
  - Off label use [Unknown]
